FAERS Safety Report 5068203-3 (Version None)
Quarter: 2006Q3

REPORT INFORMATION
  Report Type: 
  Country: None (occurrence: None)
  Receive Date: 20060802
  Receipt Date: 20050509
  Transmission Date: 20061208
  Serious: Yes (Hospitalization, Other)
  Sender: FDA-Public Use
  Company Number: US-BRISTOL-MYERS SQUIBB COMPANY-12960902

PATIENT
  Sex: Female

DRUGS (2)
  1. COUMADIN [Suspect]
     Dosage: PRESCRIBED WARFARIN SODIUM 5 MG DAILY; BUT GIVEN 4 TIMES THE LETHAL DOSE
     Dates: start: 20040601
  2. XANAX [Concomitant]
     Route: 048

REACTIONS (4)
  - ACCIDENTAL OVERDOSE [None]
  - GASTROINTESTINAL HAEMORRHAGE [None]
  - MEDICATION ERROR [None]
  - THROMBOSIS [None]
